FAERS Safety Report 24847182 (Version 3)
Quarter: 2025Q1

REPORT INFORMATION
  Report Type: Report from Study
  Country: CO (occurrence: CO)
  Receive Date: 20250116
  Receipt Date: 20250216
  Transmission Date: 20250409
  Serious: Yes (Death, Life-Threatening, Other)
  Sender: ABBVIE
  Company Number: CO-ABBVIE-6086422

PATIENT
  Age: 45 Year
  Sex: Female

DRUGS (1)
  1. VENETOCLAX [Suspect]
     Active Substance: VENETOCLAX
     Indication: Acute myeloid leukaemia
     Dosage: FORM STRENGTH: 100 MG
     Route: 048
     Dates: start: 20241223, end: 20241230

REACTIONS (4)
  - Cerebral thrombosis [Fatal]
  - Platelet count decreased [Not Recovered/Not Resolved]
  - Cerebral disorder [Fatal]
  - Acute myeloid leukaemia [Unknown]

NARRATIVE: CASE EVENT DATE: 20241201
